FAERS Safety Report 6675498-9 (Version None)
Quarter: 2010Q2

REPORT INFORMATION
  Report Type: 
  Country: None (occurrence: None)
  Receive Date: 20100409
  Receipt Date: 20100402
  Transmission Date: 20101027
  Serious: Yes (Other)
  Sender: FDA-Public Use
  Company Number: B0645678A

PATIENT
  Age: 68 Year
  Sex: Female

DRUGS (3)
  1. PAXIL [Suspect]
     Indication: DRUG USE FOR UNKNOWN INDICATION
     Dosage: 10MG PER DAY
     Route: 048
     Dates: start: 20080601
  2. PAXIL [Suspect]
     Dosage: 30MG PER DAY
     Route: 048
     Dates: start: 20080701, end: 20081001
  3. PAXIL [Suspect]
     Dosage: 10MG PER DAY
     Route: 048
     Dates: end: 20081101

REACTIONS (2)
  - PARKINSONISM [None]
  - TARDIVE DYSKINESIA [None]
